FAERS Safety Report 7988355-2 (Version None)
Quarter: 2011Q4

REPORT INFORMATION
  Report Type: 
  Country: None (occurrence: None)
  Receive Date: 20111216
  Receipt Date: 20111208
  Transmission Date: 20120403
  Serious: Yes (Death, Hospitalization)
  Sender: FDA-Public Use
  Company Number: JP-AMGEN-JPNCT2011009993

PATIENT
  Age: 83 Year
  Sex: Male
  Weight: 61 kg

DRUGS (6)
  1. FLUOROURACIL [Concomitant]
     Dosage: 3900 MG, Q2WK
     Route: 041
     Dates: start: 20101227, end: 20101229
  2. CAMPTOSAR [Concomitant]
     Indication: COLORECTAL CANCER
     Dosage: 290 MG, Q2WK
     Route: 041
     Dates: start: 20101227, end: 20101227
  3. PANITUMUMAB [Suspect]
     Indication: COLORECTAL CANCER
     Dosage: 360 MG, Q2WK
     Route: 041
     Dates: start: 20101227, end: 20101227
  4. PANITUMUMAB [Suspect]
     Dosage: 360 MG, Q2WK
     Route: 041
     Dates: start: 20110124, end: 20110124
  5. FLUOROURACIL [Concomitant]
     Indication: COLORECTAL CANCER
     Dosage: 650 MG, Q2WK
     Route: 040
     Dates: start: 20101227, end: 20101227
  6. LEVOLEUCOVORIN CALCIUM [Concomitant]
     Indication: COLORECTAL CANCER
     Dosage: 320 MG, Q2WK
     Route: 041
     Dates: start: 20101227, end: 20101227

REACTIONS (8)
  - HYPERHIDROSIS [None]
  - PYREXIA [None]
  - NEOPLASM MALIGNANT [None]
  - MALAISE [None]
  - FACE OEDEMA [None]
  - RASH GENERALISED [None]
  - DIARRHOEA [None]
  - DECREASED APPETITE [None]
